FAERS Safety Report 25189579 (Version 1)
Quarter: 2025Q2

REPORT INFORMATION
  Report Type: Spontaneous
  Country: US (occurrence: None)
  Receive Date: 20250410
  Receipt Date: 20250410
  Transmission Date: 20250717
  Serious: No
  Sender: FDA-CTU
  Company Number: None

PATIENT
  Age: 66 Year
  Sex: Female
  Weight: 72 kg

DRUGS (1)
  1. VALACYCLOVIR [Suspect]
     Active Substance: VALACYCLOVIR HYDROCHLORIDE
     Indication: Herpes virus infection
     Dosage: FREQUENCY : DAILY;?
     Route: 048

REACTIONS (7)
  - Urticaria [None]
  - Dermatitis [None]
  - Psoriasis [None]
  - Neuroma [None]
  - Sensitive skin [None]
  - Impaired quality of life [None]
  - Systemic immune activation [None]

NARRATIVE: CASE EVENT DATE: 20250410
